FAERS Safety Report 21834369 (Version 2)
Quarter: 2024Q4

REPORT INFORMATION
  Report Type: Spontaneous
  Country: US (occurrence: US)
  Receive Date: 20230108
  Receipt Date: 20241017
  Transmission Date: 20250114
  Serious: No
  Sender: ROCHE
  Company Number: US-ROCHE-3171011

PATIENT
  Sex: Male
  Weight: 107.95 kg

DRUGS (3)
  1. HEMLIBRA [Suspect]
     Active Substance: EMICIZUMAB-KXWH
     Indication: Factor VIII deficiency
     Dosage: 105MG/7ML?150MG/ML
     Route: 058
     Dates: start: 202010
  2. HEMLIBRA [Suspect]
     Active Substance: EMICIZUMAB-KXWH
     Dosage: 105MG/7ML?150MG/ML
     Route: 058
     Dates: start: 202010
  3. HEMLIBRA [Suspect]
     Active Substance: EMICIZUMAB-KXWH
     Dosage: 105MG/7ML?150MG/ML
     Route: 058
     Dates: start: 202010

REACTIONS (3)
  - Weight decreased [Unknown]
  - Nasopharyngitis [Unknown]
  - Peripheral swelling [Unknown]
